FAERS Safety Report 7801326-1 (Version None)
Quarter: 2011Q4

REPORT INFORMATION
  Report Type: 
  Country: None (occurrence: None)
  Receive Date: 20111005
  Receipt Date: 20110921
  Transmission Date: 20120403
  Serious: Yes (Other)
  Sender: FDA-Public Use
  Company Number: 2011P1008985

PATIENT
  Age: 74 Year
  Sex: Male

DRUGS (5)
  1. WARFARIN SODIUM [Suspect]
     Indication: AORTIC DISORDER
     Dosage: 2 MG;QD X6 DAYS/WK; 4 MG;Q WEDNESDAY;
     Dates: start: 20110501
  2. WARFARIN SODIUM [Suspect]
     Indication: AORTIC DISORDER
     Dosage: 2 MG;QD X6 DAYS/WK; 4 MG;Q WEDNESDAY;
     Dates: start: 20110501
  3. HYDROCHLOROTHIAZIDE [Concomitant]
  4. SIMVASTATIN [Concomitant]
  5. DRONEDARONE HCL [Concomitant]

REACTIONS (1)
  - ARRHYTHMIA [None]
